FAERS Safety Report 6144173-1 (Version None)
Quarter: 2009Q2

REPORT INFORMATION
  Report Type: 
  Country: None (occurrence: None)
  Receive Date: 20090406
  Receipt Date: 20090325
  Transmission Date: 20091009
  Serious: Yes (Death, Hospitalization)
  Sender: FDA-Public Use
  Company Number: FR-PFIZER INC-2009189801

PATIENT

DRUGS (8)
  1. TAHOR [Suspect]
     Dosage: 40 MG, 1X/DAY
     Route: 048
     Dates: end: 20090119
  2. ROVAMYCINE [Suspect]
     Dosage: 1 DF, 2X/DAY
     Route: 048
     Dates: start: 20090106, end: 20090115
  3. CEFTRIAXONE [Suspect]
     Dosage: 1000 MG, 1X/DAY
     Route: 042
     Dates: start: 20090106, end: 20090115
  4. RENAGEL [Suspect]
     Dosage: 800 MG, 1X/DAY
     Route: 048
     Dates: start: 20090111, end: 20090121
  5. PLAQUENIL [Suspect]
     Dosage: 200 MG, 2X/DAY
     Route: 048
     Dates: start: 20081201, end: 20090119
  6. BENEMIDE [Suspect]
     Dosage: 500 MG, 3X/DAY
     Route: 048
     Dates: start: 20081206, end: 20090119
  7. COLCHICINE [Suspect]
     Dosage: 0.5 MG, 1X/DAY
     Route: 048
     Dates: start: 20070601, end: 20090122
  8. MEDIATOR [Suspect]
     Dosage: 150 MG, 3X/DAY
     Route: 048
     Dates: end: 20090119

REACTIONS (4)
  - DEATH [None]
  - PRURITUS [None]
  - RASH MACULO-PAPULAR [None]
  - RASH PUSTULAR [None]
